FAERS Safety Report 7588638-4 (Version None)
Quarter: 2011Q3

REPORT INFORMATION
  Report Type: 
  Country: None (occurrence: None)
  Receive Date: 20110705
  Receipt Date: 20110601
  Transmission Date: 20111222
  Serious: Yes (Hospitalization, Other)
  Sender: FDA-Public Use
  Company Number: US-BAYER-201039322NA

PATIENT
  Age: 21 Year
  Sex: Female
  Weight: 95.692 kg

DRUGS (7)
  1. OMEPRAZOLE [Concomitant]
     Dosage: 20 MG, UNK
     Route: 048
  2. MULTI-VITAMIN [Concomitant]
     Route: 048
  3. YASMIN [Suspect]
     Indication: CONTRACEPTION
     Route: 048
     Dates: start: 20030209, end: 20050601
  4. YAZ [Suspect]
     Indication: CONTRACEPTION
  5. ASCORBIC ACID [Concomitant]
     Dosage: 500 MG, UNK
     Route: 048
  6. IBUPROFEN [Concomitant]
     Dosage: 600 MG, PRN
  7. PRILOSEC [Concomitant]
     Route: 048

REACTIONS (2)
  - BILIARY DYSKINESIA [None]
  - CHOLECYSTECTOMY [None]
